FAERS Safety Report 4739100-5 (Version None)
Quarter: 2005Q3

REPORT INFORMATION
  Report Type: 
  Country: None (occurrence: None)
  Receive Date: 20050810
  Receipt Date: 20050414
  Transmission Date: 20060218
  Serious: No
  Sender: FDA-Public Use
  Company Number: US-GLAXOSMITHKLINE-A0554225A

PATIENT
  Age: 35 Year
  Sex: Male

DRUGS (2)
  1. PAXIL CR [Suspect]
     Indication: DEPRESSION
     Dosage: 25MG PER DAY
     Route: 048
     Dates: start: 20050411, end: 20050414
  2. ACYCLOVIR [Concomitant]

REACTIONS (8)
  - ANXIETY [None]
  - ASTHENIA [None]
  - CARDIAC FLUTTER [None]
  - DIZZINESS [None]
  - DYSPNOEA [None]
  - HEART RATE INCREASED [None]
  - INSOMNIA [None]
  - SLEEP DISORDER [None]
